FAERS Safety Report 4967416-6 (Version None)
Quarter: 2006Q2

REPORT INFORMATION
  Report Type: 
  Country: None (occurrence: None)
  Receive Date: 20060407
  Receipt Date: 20060407
  Transmission Date: 20061013
  Serious: Yes (Other)
  Sender: FDA-Public Use
  Company Number: None

PATIENT
  Sex: Female
  Weight: 92.5338 kg

DRUGS (9)
  1. IRESSA [Suspect]
     Indication: RENAL CELL CARCINOMA STAGE UNSPECIFIED
     Dosage: 250 MG DAILY PO
     Route: 048
     Dates: start: 20060206, end: 20060316
  2. PEGYLATED INTERFERON ALFA 2B [Suspect]
     Indication: RENAL CELL CARCINOMA STAGE UNSPECIFIED
     Dosage: PEG-INTRON 6.0 UG/KG  WEEKLY  SQ
     Route: 058
     Dates: start: 20060206, end: 20060316
  3. DIAZEPAM [Concomitant]
  4. BENZONATATE [Concomitant]
  5. . [Concomitant]
  6. OMEPRAZOLE [Concomitant]
  7. ZOLOFT [Concomitant]
  8. DOC-Q-LACE [Concomitant]
  9. HYDROCODONE BITARTRATE [Concomitant]

REACTIONS (2)
  - HYPOKALAEMIA [None]
  - LYMPHOPENIA [None]
